FAERS Safety Report 24138069 (Version 1)
Quarter: 2024Q3

REPORT INFORMATION
  Report Type: Spontaneous
  Country: US (occurrence: None)
  Receive Date: 20240725
  Receipt Date: 20240725
  Transmission Date: 20241017
  Serious: Yes (Other)
  Sender: Public
  Company Number: None

PATIENT
  Age: 40 Year
  Sex: Male
  Weight: 90.72 kg

DRUGS (1)
  1. OZEMPIC [Suspect]
     Active Substance: SEMAGLUTIDE
     Indication: Type 2 diabetes mellitus
     Dosage: OTHER FREQUENCY : OTHER;?
     Route: 058
     Dates: start: 20240319, end: 20240713

REACTIONS (4)
  - Depression [None]
  - Agitation [None]
  - Aggression [None]
  - Mood altered [None]

NARRATIVE: CASE EVENT DATE: 20240413
